FAERS Safety Report 12641078 (Version 3)
Quarter: 2017Q4

REPORT INFORMATION
  Report Type: Spontaneous
  Country: US (occurrence: US)
  Receive Date: 20160810
  Receipt Date: 20171202
  Transmission Date: 20180320
  Serious: No
  Sender: FDA-Public Use
  Company Number: US-ENDO PHARMACEUTICALS INC.-2016-003281

PATIENT
  Age: 55 Year
  Sex: Male
  Weight: 99.88 kg

DRUGS (8)
  1. TRENTAL [Concomitant]
     Active Substance: PENTOXIFYLLINE
     Indication: PRODUCT USED FOR UNKNOWN INDICATION
  2. XIAFLEX [Suspect]
     Active Substance: COLLAGENASE CLOSTRIDIUM HISTOLYTICUM
     Indication: PEYRONIE^S DISEASE
  3. VITAMIN E [Concomitant]
     Active Substance: .ALPHA.-TOCOPHEROL
     Indication: PRODUCT USED FOR UNKNOWN INDICATION
  4. VIAGRA [Concomitant]
     Active Substance: SILDENAFIL CITRATE
     Indication: PRODUCT USED FOR UNKNOWN INDICATION
  5. XIAFLEX [Suspect]
     Active Substance: COLLAGENASE CLOSTRIDIUM HISTOLYTICUM
     Dosage: 3RD CYCLE OF SECOND INJECTION
     Route: 026
     Dates: start: 20160322, end: 20160322
  6. XIAFLEX [Suspect]
     Active Substance: COLLAGENASE CLOSTRIDIUM HISTOLYTICUM
     Dosage: 1ST AND 2ND CYCLE OF 2 INJECTIONS
     Route: 065
  7. XIAFLEX [Suspect]
     Active Substance: COLLAGENASE CLOSTRIDIUM HISTOLYTICUM
     Dosage: 3RD CYCLE OF FIRST INJECTION
     Route: 026
     Dates: start: 20160321, end: 20160321
  8. CIALIS [Concomitant]
     Active Substance: TADALAFIL
     Indication: PRODUCT USED FOR UNKNOWN INDICATION

REACTIONS (4)
  - Penile pain [Recovered/Resolved]
  - Penile haemorrhage [Recovered/Resolved]
  - Penile oedema [Recovered/Resolved]
  - Penile haematoma [Recovered/Resolved]

NARRATIVE: CASE EVENT DATE: 20160324
